FAERS Safety Report 7888382-X (Version None)
Quarter: 2011Q4

REPORT INFORMATION
  Report Type: 
  Country: None (occurrence: None)
  Receive Date: 20111103
  Receipt Date: 20111031
  Transmission Date: 20120403
  Serious: Yes (Other)
  Sender: FDA-Public Use
  Company Number: US-PFIZER INC-2011266454

PATIENT
  Sex: Male
  Weight: 74.83 kg

DRUGS (1)
  1. VIAGRA [Suspect]
     Indication: ERECTILE DYSFUNCTION
     Dosage: 1000 UNK, AS NEEDED
     Dates: start: 20111026

REACTIONS (2)
  - ERECTION INCREASED [None]
  - PENILE HAEMORRHAGE [None]
